FAERS Safety Report 4846759-0 (Version None)
Quarter: 2005Q4

REPORT INFORMATION
  Report Type: 
  Country: None (occurrence: None)
  Receive Date: 20051206
  Receipt Date: 20051128
  Transmission Date: 20060501
  Serious: Yes (Hospitalization)
  Sender: FDA-Public Use
  Company Number: TW-MERCK-0511TWN00024

PATIENT
  Age: 89 Year
  Sex: Male
  Weight: 60 kg

DRUGS (3)
  1. INVANZ [Suspect]
     Indication: BILIARY TRACT INFECTION
     Route: 042
     Dates: start: 20050912, end: 20050916
  2. ALBUTEROL SULFATE AND IPRATROPIUM BROMIDE [Concomitant]
     Route: 065
     Dates: start: 20050912, end: 20051002
  3. SODIUM POLYSTYRENE SULFONATE [Concomitant]
     Route: 065
     Dates: start: 20050912, end: 20050919

REACTIONS (2)
  - CONVULSION [None]
  - ECCHYMOSIS [None]
